FAERS Safety Report 23583981 (Version 2)
Quarter: 2024Q1

REPORT INFORMATION
  Report Type: Spontaneous
  Country: US (occurrence: None)
  Receive Date: 20240301
  Receipt Date: 20240328
  Transmission Date: 20240410
  Serious: No
  Sender: FDA-Public Use
  Company Number: 2024A038534

PATIENT
  Age: 29428 Day
  Sex: Female

DRUGS (1)
  1. BYDUREON BCISE [Suspect]
     Active Substance: EXENATIDE
     Indication: Diabetes mellitus

REACTIONS (3)
  - Injection site pain [Unknown]
  - Incorrect dose administered [Unknown]
  - Device leakage [Unknown]

NARRATIVE: CASE EVENT DATE: 20240214
